FAERS Safety Report 5032552-5 (Version None)
Quarter: 2006Q2

REPORT INFORMATION
  Report Type: 
  Country: None (occurrence: None)
  Receive Date: 20060620
  Receipt Date: 20060607
  Transmission Date: 20061013
  Serious: Yes (Other)
  Sender: FDA-Public Use
  Company Number: HQWYE982706JUN06

PATIENT
  Age: 80 Year
  Sex: Female
  Weight: 49.03 kg

DRUGS (1)
  1. PREMARIN [Suspect]
     Indication: MENOPAUSE
     Dosage: VARIED FROM 0.625MG; 0.3MG, AND 0.9MG, ORAL
     Route: 048
     Dates: start: 19650101, end: 20060601

REACTIONS (8)
  - CONFUSIONAL STATE [None]
  - HEADACHE [None]
  - HEART RATE ABNORMAL [None]
  - MALAISE [None]
  - NAUSEA [None]
  - OEDEMA PERIPHERAL [None]
  - RASH [None]
  - SHOCK [None]
